FAERS Safety Report 24660823 (Version 1)
Quarter: 2024Q4

REPORT INFORMATION
  Report Type: Spontaneous
  Country: US (occurrence: US)
  Receive Date: 20241125
  Receipt Date: 20241125
  Transmission Date: 20250115
  Serious: No
  Sender: AVADEL CNS PHARMACEUTICALS, LLC
  Company Number: US-AVADEL CNS PHARMACEUTICALS, LLC-2024AVA02013

PATIENT
  Sex: Female
  Weight: 72.562 kg

DRUGS (19)
  1. LUMRYZ [Suspect]
     Active Substance: SODIUM OXYBATE
     Indication: Narcolepsy
     Dosage: 4.5 G
     Route: 048
     Dates: start: 20241004, end: 20241010
  2. LUMRYZ [Suspect]
     Active Substance: SODIUM OXYBATE
     Indication: Narcolepsy
     Dosage: 6 G, 1X/DAY NIGHTLY
     Route: 048
     Dates: start: 20241011
  3. WAKIX [Concomitant]
     Active Substance: PITOLISANT HYDROCHLORIDE
     Dosage: 17.8 MG, 1X/DAY
  4. MODAFINIL [Concomitant]
     Active Substance: MODAFINIL
     Dosage: 200 MG, 1X/DAY
  5. BARIATRIC ADVANTAGE MULTIVITAMIN [Concomitant]
     Dosage: 1 DOSAGE FORM, 1X/DAY
  6. DULOXETINE [Concomitant]
     Active Substance: DULOXETINE
     Dosage: 60 MG, 1X/DAY
  7. CROMOLYN SODIUM [Concomitant]
     Active Substance: CROMOLYN SODIUM
     Dosage: UNK, 4X/DAY
  8. PANTOPRAZOLE [Concomitant]
     Active Substance: PANTOPRAZOLE
     Dosage: 40 MG, 2X/DAY
  9. UNITHROID [Concomitant]
     Active Substance: LEVOTHYROXINE SODIUM
     Dosage: 175 ?G, 1X/DAY
  10. MIDODRINE [Concomitant]
     Active Substance: MIDODRINE
     Dosage: 5 ?G, 1X/DAY
  11. VITAMIN D3 [Concomitant]
     Active Substance: CHOLECALCIFEROL
     Dosage: 250 ?G, 1X/DAY
  12. HYDROXYCHLOROQUINE [Concomitant]
     Active Substance: HYDROXYCHLOROQUINE
     Dosage: 200 MG, 1X/DAY
  13. CLARITIN [Concomitant]
     Active Substance: LORATADINE
     Dosage: UNK, 1X/DAY
  14. GABAPENTIN [Concomitant]
     Active Substance: GABAPENTIN
     Dosage: 1 TABLET IN THE MORNING AND 2 TABLETS IN THE EVENING
  15. MELOXICAM [Concomitant]
     Active Substance: MELOXICAM
     Dosage: 15 MG, 1X/DAY
  16. PYRIDOSTIGMINE [Concomitant]
     Active Substance: PYRIDOSTIGMINE
     Dosage: 3 ML, 2X/DAY
  17. PLAVIX [Concomitant]
     Active Substance: CLOPIDOGREL BISULFATE
     Dosage: 75 MG, 1X/DAY
  18. UBRELVY [Concomitant]
     Active Substance: UBROGEPANT
     Dosage: 100 MG, AS NEEDED FOR MIGRAINES
  19. LIOTHYRONINE [Concomitant]
     Active Substance: LIOTHYRONINE
     Dosage: 10 ?G, 1X/DAY

REACTIONS (9)
  - Restlessness [Not Recovered/Not Resolved]
  - Middle insomnia [Not Recovered/Not Resolved]
  - Urinary incontinence [Unknown]
  - Performance status decreased [Unknown]
  - Fatigue [Not Recovered/Not Resolved]
  - Nocturia [Not Recovered/Not Resolved]
  - Agitation [Recovered/Resolved]
  - Nausea [Recovered/Resolved]
  - Headache [Recovered/Resolved]

NARRATIVE: CASE EVENT DATE: 20240101
